FAERS Safety Report 8762129 (Version 2)
Quarter: 2012Q4

REPORT INFORMATION
  Report Type: 
  Country: US (occurrence: US)
  Receive Date: 20120830
  Receipt Date: 20120911
  Transmission Date: 20130627
  Serious: Yes (Hospitalization, Other)
  Sender: FDA-Public Use
  Company Number: US-ACTELION-A-NJ2011-45365

PATIENT
  Age: 74 Year
  Sex: Male

DRUGS (3)
  1. TRACLEER [Suspect]
     Indication: PULMONARY ARTERIAL HYPERTENSION
     Dosage: UNK
     Route: 048
     Dates: start: 20100104
  2. REVATIO [Concomitant]
  3. COUMADIN [Concomitant]

REACTIONS (5)
  - Obesity [Recovered/Resolved]
  - Gastric bypass [Recovered/Resolved]
  - Gait disturbance [Unknown]
  - Dyspnoea [Recovered/Resolved]
  - Wheezing [Recovering/Resolving]
